APPROVED DRUG PRODUCT: GEN-XENE
Active Ingredient: CLORAZEPATE DIPOTASSIUM
Strength: 7.5MG
Dosage Form/Route: TABLET;ORAL
Application: A071788 | Product #001
Applicant: ALRA LABORATORIES INC
Approved: Apr 26, 1988 | RLD: No | RS: No | Type: DISCN